FAERS Safety Report 4795388-6 (Version None)
Quarter: 2005Q4

REPORT INFORMATION
  Report Type: 
  Country: None (occurrence: None)
  Receive Date: 20051012
  Receipt Date: 20050926
  Transmission Date: 20060501
  Serious: Yes (Death, Hospitalization)
  Sender: FDA-Public Use
  Company Number: 2005AP05045

PATIENT
  Age: 70 Year

DRUGS (3)
  1. OMEPRAZOLE [Suspect]
     Indication: PROPHYLAXIS AGAINST GASTROINTESTINAL ULCER
     Route: 048
     Dates: start: 20000101
  2. PREDONINE [Concomitant]
     Indication: MYOSITIS
     Route: 048
  3. CA ANTAGONIST [Concomitant]

REACTIONS (3)
  - DRUG INEFFECTIVE [None]
  - INJURY ASPHYXIATION [None]
  - UPPER GASTROINTESTINAL HAEMORRHAGE [None]
